FAERS Safety Report 17567402 (Version 2)
Quarter: 2022Q2

REPORT INFORMATION
  Report Type: Spontaneous
  Country: US (occurrence: US)
  Receive Date: 20200320
  Receipt Date: 20220629
  Transmission Date: 20220721
  Serious: Yes (Hospitalization)
  Sender: FDA-Public Use
  Company Number: US-VERTEX PHARMACEUTICALS-2020-005090

PATIENT
  Age: 27 Year
  Sex: Male

DRUGS (2)
  1. SYMDEKO [Suspect]
     Active Substance: IVACAFTOR\TEZACAFTOR
     Indication: Cystic fibrosis
     Dosage: 1 DOSAGE FORM (100MG/150MG IN MORNING AND 150 MG IN EVENING), BID
     Route: 048
     Dates: start: 201609
  2. SYMDEKO [Suspect]
     Active Substance: IVACAFTOR\TEZACAFTOR
     Dosage: 1 DOSAGE FORM (100MG/150MG IN MORNING AND 150 MG IN EVENING), BID
     Route: 048
     Dates: start: 20180712, end: 20200126

REACTIONS (1)
  - Haemoptysis [Recovered/Resolved]

NARRATIVE: CASE EVENT DATE: 20190205
